FAERS Safety Report 6010356-4 (Version None)
Quarter: 2008Q4

REPORT INFORMATION
  Report Type: 
  Country: None (occurrence: None)
  Receive Date: 20081218
  Receipt Date: 20081216
  Transmission Date: 20090506
  Serious: Yes (Hospitalization)
  Sender: FDA-Public Use
  Company Number: US-BRISTOL-MYERS SQUIBB COMPANY-14416903

PATIENT
  Age: 58 Year
  Sex: Female

DRUGS (6)
  1. COUMADIN [Suspect]
     Indication: HEART VALVE REPLACEMENT
     Route: 065
  2. ORLISTAT [Interacting]
     Indication: WEIGHT LOSS DIET
     Dosage: ORLISTAT (ALLI) CAPSULE IS TAKEN.
     Route: 048
     Dates: start: 20080301, end: 20080101
  3. ATENOLOL [Concomitant]
  4. CRESTOR [Concomitant]
  5. PROAIR HFA [Concomitant]
  6. SPIRIVA [Concomitant]

REACTIONS (6)
  - ABDOMINAL PAIN UPPER [None]
  - DRUG INTERACTION [None]
  - HAEMATEMESIS [None]
  - LARGE INTESTINAL HAEMORRHAGE [None]
  - LOWER GASTROINTESTINAL HAEMORRHAGE [None]
  - PROTHROMBIN TIME PROLONGED [None]
